FAERS Safety Report 22160271 (Version 1)
Quarter: 2023Q1

REPORT INFORMATION
  Report Type: Spontaneous
  Country: US (occurrence: None)
  Receive Date: 20230330
  Receipt Date: 20230330
  Transmission Date: 20230417
  Serious: Yes (Hospitalization)
  Sender: FDA-Public Use
  Company Number: None

PATIENT
  Sex: Female

DRUGS (4)
  1. BETHKIS [Suspect]
     Active Substance: TOBRAMYCIN
     Indication: Chronic respiratory disease
     Dosage: OTHER QUANTITY : 300 MG/4ML;?FREQUENCY : AS DIRECTED;?OTHER ROUTE : NEBULIZER;?
     Route: 050
     Dates: start: 20161117
  2. BETHKIS [Suspect]
     Active Substance: TOBRAMYCIN
     Dosage: FREQUENCY : AS DIRECTED;?OTHER ROUTE : NEBULIZER;?
     Route: 050
  3. PENCILLIN [Concomitant]
  4. TOPAMAX [Concomitant]
     Active Substance: TOPIRAMATE

REACTIONS (1)
  - Gastrointestinal disorder [None]
